FAERS Safety Report 4816839-4 (Version None)
Quarter: 2005Q4

REPORT INFORMATION
  Report Type: 
  Country: None (occurrence: None)
  Receive Date: 20051101
  Receipt Date: 20051017
  Transmission Date: 20060501
  Serious: Yes (Hospitalization)
  Sender: FDA-Public Use
  Company Number: US-KINGPHARMUSA00001-K200501366

PATIENT
  Age: 59 Year
  Sex: Female

DRUGS (4)
  1. ALTACE [Suspect]
     Indication: CARDIAC FAILURE
     Dosage: 5 MG, QD
     Route: 048
     Dates: end: 20050420
  2. KETOPROFEN [Suspect]
     Indication: PAIN IN EXTREMITY
     Route: 048
     Dates: start: 20050408, end: 20050420
  3. ALDACTAZINE [Suspect]
     Indication: SCIATICA
     Dosage: 1 U, QD
     Route: 048
     Dates: end: 20050420
  4. PROPOXYPHENE 65 ACETAMINOPHEN COMPOUND CAP [Concomitant]
     Indication: PAIN IN EXTREMITY
     Dosage: UNK, UNK
     Dates: start: 20040401

REACTIONS (9)
  - DRUG INTERACTION [None]
  - DYSSTASIA [None]
  - ERECTILE DYSFUNCTION [None]
  - GENERAL PHYSICAL HEALTH DETERIORATION [None]
  - HYPERKALAEMIA [None]
  - PAIN IN EXTREMITY [None]
  - RENAL IMPAIRMENT [None]
  - SCIATICA [None]
  - TENDON DISORDER [None]
